FAERS Safety Report 22319211 (Version 1)
Quarter: 2023Q2

REPORT INFORMATION
  Report Type: Spontaneous
  Country: IT (occurrence: IT)
  Receive Date: 20230515
  Receipt Date: 20230515
  Transmission Date: 20230722
  Serious: Yes (Other)
  Sender: FDA-Public Use
  Company Number: None

PATIENT
  Age: 58 Year
  Sex: Male

DRUGS (3)
  1. AMIODARONE [Suspect]
     Active Substance: AMIODARONE
     Indication: Supraventricular tachycardia
     Dosage: HE DECLARES THERAPEUTIC CONTINUITY FROM 10/28/2022 WITH AMIODARONE SDZ 200MG 20CPR: AMIODARONE (PA);
     Route: 065
     Dates: start: 20221028, end: 20230417
  2. BISOPROLOL FUMARATE [Concomitant]
     Active Substance: BISOPROLOL FUMARATE
     Indication: Hypertensive heart disease
     Dosage: DECLARES THERAPEUTIC CONTINUITY FROM 10/28/2022 WITH BISOPROLOL SDZ 2.5 MG 28CPR: BISOPROLOL (PA); D
     Route: 065
     Dates: start: 20221028
  3. XARELTO [Concomitant]
     Active Substance: RIVAROXABAN
     Indication: Myocardial ischaemia
     Dosage: HE DECLARES THERAPEUTIC CONTINUITY FROM 10/28/2022 WITH XARELTO U28CPR RIV 20MG: RIVAROXABAN(PA); DO
     Dates: start: 20221028

REACTIONS (1)
  - Secondary hyperthyroidism [Not Recovered/Not Resolved]

NARRATIVE: CASE EVENT DATE: 20221129
